FAERS Safety Report 4613846-1 (Version None)
Quarter: 2005Q1

REPORT INFORMATION
  Report Type: 
  Country: None (occurrence: None)
  Receive Date: 20050321
  Receipt Date: 20050309
  Transmission Date: 20050727
  Serious: Yes (Other)
  Sender: FDA-Public Use
  Company Number: FR-BRISTOL-MYERS SQUIBB COMPANY-12904587

PATIENT
  Age: 63 Year
  Sex: Male

DRUGS (3)
  1. VIDEX [Suspect]
     Indication: HIV INFECTION
  2. ZERIT [Suspect]
     Indication: HIV INFECTION
  3. VIRAMUNE [Suspect]
     Dates: start: 20040913

REACTIONS (1)
  - PANCREATITIS ACUTE [None]
